FAERS Safety Report 7672432-X (Version None)
Quarter: 2011Q3

REPORT INFORMATION
  Report Type: 
  Country: None (occurrence: None)
  Receive Date: 20110809
  Receipt Date: 20110808
  Transmission Date: 20111222
  Serious: Yes (Hospitalization, Other)
  Sender: FDA-Public Use
  Company Number: US-MERCK-0810USA01675

PATIENT
  Age: 65 Year
  Sex: Female
  Weight: 60 kg

DRUGS (4)
  1. FOSAMAX [Suspect]
     Indication: OSTEOPOROSIS
     Route: 048
     Dates: start: 19960501, end: 20010101
  2. FOSAMAX PLUS D [Suspect]
     Route: 048
     Dates: start: 20060501, end: 20080101
  3. FOSAMAX [Suspect]
     Route: 048
     Dates: start: 20020101, end: 20020904
  4. FOSAMAX [Suspect]
     Route: 048
     Dates: start: 20000605

REACTIONS (25)
  - SPINAL OSTEOARTHRITIS [None]
  - HYPERTROPHIC CARDIOMYOPATHY [None]
  - ATRIAL FIBRILLATION [None]
  - HYPERLIPIDAEMIA [None]
  - NEUROPATHY PERIPHERAL [None]
  - BACK PAIN [None]
  - HIP FRACTURE [None]
  - ARTHRALGIA [None]
  - INTERVERTEBRAL DISC DEGENERATION [None]
  - INTERVERTEBRAL DISC PROTRUSION [None]
  - PHLEBITIS [None]
  - CYST [None]
  - BONE DENSITY DECREASED [None]
  - LOW TURNOVER OSTEOPATHY [None]
  - BONE LOSS [None]
  - BONE METABOLISM DISORDER [None]
  - HAEMANGIOMA [None]
  - MUSCULAR WEAKNESS [None]
  - GAIT DISTURBANCE [None]
  - FEMUR FRACTURE [None]
  - FALL [None]
  - IMPAIRED HEALING [None]
  - HYPERTENSION [None]
  - TOOTH DISORDER [None]
  - CARDIOMEGALY [None]
